FAERS Safety Report 7399223-1 (Version None)
Quarter: 2011Q1

REPORT INFORMATION
  Report Type: 
  Country: None (occurrence: None)
  Receive Date: 20110301
  Receipt Date: 20100405
  Transmission Date: 20110831
  Serious: Yes (Hospitalization)
  Sender: FDA-Public Use
  Company Number: RB-06269-2010

PATIENT
  Age: 72 Year
  Sex: Female

DRUGS (2)
  1. SUBOXONE [Suspect]
     Indication: DRUG DEPENDENCE
     Dosage: (4 MG BID SUBLINGUAL), (2 MG BID SUBLINGUAL)
     Route: 060
     Dates: start: 20090901, end: 20100403
  2. SUBOXONE [Suspect]
     Indication: DRUG DEPENDENCE
     Dosage: (4 MG BID SUBLINGUAL), (2 MG BID SUBLINGUAL)
     Route: 060
     Dates: start: 20090401, end: 20090901

REACTIONS (2)
  - HYPERHIDROSIS [None]
  - DRUG WITHDRAWAL SYNDROME [None]
